FAERS Safety Report 5698172-4 (Version None)
Quarter: 2008Q2

REPORT INFORMATION
  Report Type: 
  Country: None (occurrence: None)
  Receive Date: 20080403
  Receipt Date: 20080321
  Transmission Date: 20081010
  Serious: Yes (Hospitalization)
  Sender: FDA-Public Use
  Company Number: 000356

PATIENT
  Age: 49 Year
  Sex: Male

DRUGS (1)
  1. BUSULFEX [Suspect]
     Indication: STEM CELL TRANSPLANT
     Dosage: 32 ML, INTRAVENOUS
     Route: 042
     Dates: start: 20070613, end: 20070616

REACTIONS (2)
  - SEPSIS [None]
  - STEM CELL TRANSPLANT [None]
